FAERS Safety Report 16938114 (Version 2)
Quarter: 2019Q4

REPORT INFORMATION
  Report Type: Spontaneous
  Country: CH (occurrence: CH)
  Receive Date: 20191018
  Receipt Date: 20191113
  Transmission Date: 20200122
  Serious: Yes (Hospitalization)
  Sender: FDA-Public Use
  Company Number: CH-PFIZER INC-2019447516

PATIENT
  Age: 21 Year
  Sex: Male

DRUGS (1)
  1. LYRICA [Suspect]
     Active Substance: PREGABALIN
     Dosage: IN THE EVENING HE TOOK 4-5 TABLETS OF LYRICA 150 MG
     Route: 048
     Dates: start: 20190921, end: 20190921

REACTIONS (7)
  - Craniocerebral injury [Recovered/Resolved]
  - Fall [Unknown]
  - Skin abrasion [Unknown]
  - Somnolence [Unknown]
  - Drug abuse [Recovered/Resolved]
  - Altered state of consciousness [Recovered/Resolved]
  - Syncope [Recovered/Resolved]

NARRATIVE: CASE EVENT DATE: 20190921
